FAERS Safety Report 25569495 (Version 2)
Quarter: 2025Q3

REPORT INFORMATION
  Report Type: Spontaneous
  Country: EU (occurrence: EU)
  Receive Date: 20250716
  Receipt Date: 20250729
  Transmission Date: 20251020
  Serious: Yes (Other)
  Sender: Harrow Health
  Company Number: EU-IMP-2024000312

PATIENT

DRUGS (52)
  1. VERKAZIA [Suspect]
     Active Substance: CYCLOSPORINE
     Indication: Cystoid macular oedema
     Route: 047
  2. VERKAZIA [Suspect]
     Active Substance: CYCLOSPORINE
     Indication: Retinitis pigmentosa
  3. VERKAZIA [Suspect]
     Active Substance: CYCLOSPORINE
     Indication: Cystoid macular oedema
  4. VERKAZIA [Suspect]
     Active Substance: CYCLOSPORINE
     Indication: Retinitis pigmentosa
  5. VEVYE [Suspect]
     Active Substance: CYCLOSPORINE
     Indication: Cystoid macular oedema
     Route: 047
  6. VEVYE [Suspect]
     Active Substance: CYCLOSPORINE
     Indication: Retinitis pigmentosa
  7. VEVYE [Suspect]
     Active Substance: CYCLOSPORINE
     Indication: Cystoid macular oedema
  8. VEVYE [Suspect]
     Active Substance: CYCLOSPORINE
     Indication: Retinitis pigmentosa
  9. ILEVRO [Suspect]
     Active Substance: NEPAFENAC
     Indication: Cystoid macular oedema
     Route: 047
  10. ILEVRO [Suspect]
     Active Substance: NEPAFENAC
     Indication: Retinitis pigmentosa
  11. ILEVRO [Suspect]
     Active Substance: NEPAFENAC
     Indication: Cystoid macular oedema
  12. ILEVRO [Suspect]
     Active Substance: NEPAFENAC
     Indication: Retinitis pigmentosa
  13. NEVANAC [Suspect]
     Active Substance: NEPAFENAC
     Indication: Cystoid macular oedema
     Route: 047
  14. NEVANAC [Suspect]
     Active Substance: NEPAFENAC
     Indication: Cystoid macular oedema
  15. NEVANAC [Suspect]
     Active Substance: NEPAFENAC
     Indication: Cystoid macular oedema
  16. NEVANAC [Suspect]
     Active Substance: NEPAFENAC
     Indication: Retinitis pigmentosa
  17. TRIESENCE [Suspect]
     Active Substance: TRIAMCINOLONE ACETONIDE
     Indication: Cystoid macular oedema
     Route: 047
  18. TRIESENCE [Suspect]
     Active Substance: TRIAMCINOLONE ACETONIDE
     Indication: Retinitis pigmentosa
  19. TRIESENCE [Suspect]
     Active Substance: TRIAMCINOLONE ACETONIDE
     Indication: Retinitis pigmentosa
  20. TRIESENCE [Suspect]
     Active Substance: TRIAMCINOLONE ACETONIDE
     Indication: Cystoid macular oedema
  21. ADALIMUMAB [Suspect]
     Active Substance: ADALIMUMAB
     Indication: Cystoid macular oedema
     Route: 058
  22. ADALIMUMAB [Suspect]
     Active Substance: ADALIMUMAB
     Indication: Retinitis pigmentosa
  23. ADALIMUMAB [Suspect]
     Active Substance: ADALIMUMAB
     Indication: Cystoid macular oedema
  24. ADALIMUMAB [Suspect]
     Active Substance: ADALIMUMAB
     Indication: Retinitis pigmentosa
  25. IMURAN [Suspect]
     Active Substance: AZATHIOPRINE
     Indication: Cystoid macular oedema
     Route: 048
  26. IMURAN [Suspect]
     Active Substance: AZATHIOPRINE
     Indication: Retinitis pigmentosa
  27. IMURAN [Suspect]
     Active Substance: AZATHIOPRINE
     Indication: Cystoid macular oedema
     Route: 047
  28. IMURAN [Suspect]
     Active Substance: AZATHIOPRINE
     Indication: Retinitis pigmentosa
  29. DEXAMETHASONE [Suspect]
     Active Substance: DEXAMETHASONE
     Indication: Cystoid macular oedema
  30. DEXAMETHASONE [Suspect]
     Active Substance: DEXAMETHASONE
     Indication: Retinitis pigmentosa
  31. DEXAMETHASONE [Suspect]
     Active Substance: DEXAMETHASONE
     Indication: Retinitis pigmentosa
  32. DEXAMETHASONE [Suspect]
     Active Substance: DEXAMETHASONE
     Indication: Cystoid macular oedema
  33. DORZOLAMIDE [Suspect]
     Active Substance: DORZOLAMIDE
     Indication: Cystoid macular oedema
  34. DORZOLAMIDE [Suspect]
     Active Substance: DORZOLAMIDE
     Indication: Retinitis pigmentosa
  35. DORZOLAMIDE [Suspect]
     Active Substance: DORZOLAMIDE
     Indication: Retinitis pigmentosa
  36. DORZOLAMIDE [Suspect]
     Active Substance: DORZOLAMIDE
     Indication: Cystoid macular oedema
  37. ACETAZOLAMIDE [Suspect]
     Active Substance: ACETAZOLAMIDE
     Indication: Cystoid macular oedema
     Route: 048
  38. ACETAZOLAMIDE [Suspect]
     Active Substance: ACETAZOLAMIDE
     Indication: Retinitis pigmentosa
  39. ACETAZOLAMIDE [Suspect]
     Active Substance: ACETAZOLAMIDE
     Indication: Retinitis pigmentosa
  40. ACETAZOLAMIDE [Suspect]
     Active Substance: ACETAZOLAMIDE
     Indication: Cystoid macular oedema
  41. METHOTREXATE [Suspect]
     Active Substance: METHOTREXATE
     Indication: Retinitis pigmentosa
     Route: 048
  42. METHOTREXATE [Suspect]
     Active Substance: METHOTREXATE
     Route: 047
  43. INFLIXIMAB [Suspect]
     Active Substance: INFLIXIMAB
     Indication: Retinitis pigmentosa
     Route: 048
  44. INFLIXIMAB [Suspect]
     Active Substance: INFLIXIMAB
     Route: 047
  45. DECADRON (DEXAMETHASONE SODIUM PHOSPHATE) [Suspect]
     Active Substance: DEXAMETHASONE SODIUM PHOSPHATE
     Indication: Cystoid macular oedema
  46. DECADRON (DEXAMETHASONE SODIUM PHOSPHATE) [Suspect]
     Active Substance: DEXAMETHASONE SODIUM PHOSPHATE
     Indication: Retinitis pigmentosa
  47. DECADRON (DEXAMETHASONE SODIUM PHOSPHATE) [Suspect]
     Active Substance: DEXAMETHASONE SODIUM PHOSPHATE
     Indication: Retinitis pigmentosa
  48. DECADRON (DEXAMETHASONE SODIUM PHOSPHATE) [Suspect]
     Active Substance: DEXAMETHASONE SODIUM PHOSPHATE
     Indication: Cystoid macular oedema
  49. CYCLOSPORINE [Suspect]
     Active Substance: CYCLOSPORINE
     Indication: Cystoid macular oedema
     Route: 048
  50. CYCLOSPORINE [Suspect]
     Active Substance: CYCLOSPORINE
     Indication: Retinitis pigmentosa
  51. CYCLOSPORINE [Suspect]
     Active Substance: CYCLOSPORINE
     Indication: Retinitis pigmentosa
  52. CYCLOSPORINE [Suspect]
     Active Substance: CYCLOSPORINE
     Indication: Cystoid macular oedema

REACTIONS (4)
  - Cystoid macular oedema [Recovered/Resolved]
  - Drug ineffective for unapproved indication [Unknown]
  - Off label use [Unknown]
  - Therapeutic product effect incomplete [Unknown]
